FAERS Safety Report 7678755-2 (Version None)
Quarter: 2011Q3

REPORT INFORMATION
  Report Type: 
  Country: None (occurrence: None)
  Receive Date: 20110811
  Receipt Date: 20110802
  Transmission Date: 20111222
  Serious: Yes (Hospitalization)
  Sender: FDA-Public Use
  Company Number: US-ASTRAZENECA-2010SE05897

PATIENT
  Age: 43 Year
  Sex: Female

DRUGS (6)
  1. CRESTOR [Suspect]
     Route: 048
     Dates: start: 20091101
  2. HIPREX [Concomitant]
  3. WELLBUTRIN [Concomitant]
  4. DIAMOX SRC [Concomitant]
  5. NEXIUM [Suspect]
     Indication: GASTROOESOPHAGEAL REFLUX DISEASE
     Route: 048
     Dates: start: 20010101
  6. TOPAMAX [Concomitant]

REACTIONS (6)
  - INCORRECT DRUG ADMINISTRATION DURATION [None]
  - ARTHRALGIA [None]
  - LIGAMENT RUPTURE [None]
  - ABDOMINAL PAIN UPPER [None]
  - LIGAMENT OPERATION [None]
  - DRUG DOSE OMISSION [None]
